FAERS Safety Report 9189573 (Version 2)
Quarter: 2013Q2

REPORT INFORMATION
  Report Type: Spontaneous
  Country: ES (occurrence: ES)
  Receive Date: 20130326
  Receipt Date: 20130420
  Transmission Date: 20140414
  Serious: Yes (Death, Hospitalization)
  Sender: FDA-Public Use
  Company Number: ES-ACCORD-016923

PATIENT
  Age: 72 Year
  Sex: Male

DRUGS (2)
  1. PACLITAXEL [Suspect]
     Indication: LUNG NEOPLASM MALIGNANT
     Route: 042
     Dates: start: 20121106, end: 20121106
  2. CARBOPLATIN [Suspect]
     Indication: LUNG NEOPLASM MALIGNANT
     Route: 042
     Dates: start: 20121106, end: 20121106

REACTIONS (9)
  - Renal failure [Fatal]
  - Neutropenia [Fatal]
  - Diarrhoea [Not Recovered/Not Resolved]
  - Sepsis [Fatal]
  - Respiratory failure [Recovered/Resolved]
  - Hyperkalaemia [Unknown]
  - Off label use [Unknown]
  - Thrombocytopenia [Unknown]
  - Anaemia [Unknown]
